FAERS Safety Report 6189351-0 (Version None)
Quarter: 2009Q2

REPORT INFORMATION
  Report Type: 
  Country: None (occurrence: None)
  Receive Date: 20090512
  Receipt Date: 20090424
  Transmission Date: 20091009
  Serious: Yes (Life-Threatening, Hospitalization, Other)
  Sender: FDA-Public Use
  Company Number: ADE# 09-162DPR

PATIENT
  Age: 70 Year
  Sex: Female

DRUGS (16)
  1. DIGOXIN [Suspect]
     Indication: CARDIOMYOPATHY
     Dosage: 13 YEAR AGO
     Dates: start: 20090424
  2. REMICADE [Concomitant]
  3. KLOR-CON (POTASSIUM) 10MG [Concomitant]
  4. ASALAN 137MCG [Concomitant]
  5. ZESTROL 140MG [Concomitant]
  6. LIPITOR [Concomitant]
  7. ZEDIA 10MG [Concomitant]
  8. NORVASC [Concomitant]
  9. MAGNESIUM SUPPLEMENT 250MG [Concomitant]
  10. LASIX [Concomitant]
  11. ADVAIR/550 [Concomitant]
  12. ATENOLOL [Concomitant]
  13. LANOXIN [Concomitant]
  14. ELMIRON [Concomitant]
  15. ASPIRIN [Concomitant]
  16. UNSPECIFIED MULTIVITAMIN DAILY [Concomitant]

REACTIONS (15)
  - ANAEMIA [None]
  - BLOOD MAGNESIUM DECREASED [None]
  - BLOOD POTASSIUM DECREASED [None]
  - CHEST PAIN [None]
  - CHRONIC OBSTRUCTIVE PULMONARY DISEASE [None]
  - COUGH [None]
  - DIZZINESS [None]
  - GASTRIC DISORDER [None]
  - LOSS OF CONSCIOUSNESS [None]
  - MALAISE [None]
  - NAUSEA [None]
  - PAIN [None]
  - PNEUMONIA [None]
  - PULMONARY OEDEMA [None]
  - SYNCOPE [None]
